FAERS Safety Report 4536083-8 (Version None)
Quarter: 2004Q4

REPORT INFORMATION
  Report Type: 
  Country: None (occurrence: None)
  Receive Date: 20041223
  Receipt Date: 20041216
  Transmission Date: 20050328
  Serious: Yes (Hospitalization, Other)
  Sender: FDA-Public Use
  Company Number: GB-BRISTOL-MYERS SQUIBB COMPANY-12799581

PATIENT
  Age: 64 Year
  Sex: Female

DRUGS (4)
  1. ABILIFY [Suspect]
     Indication: SCHIZOPHRENIA
     Route: 048
     Dates: start: 20041105, end: 20041119
  2. OLANZAPINE [Concomitant]
     Indication: SCHIZOPHRENIA
     Dates: end: 20041104
  3. DEPAKOTE [Concomitant]
     Indication: MOOD SWINGS
  4. ASPIRIN [Concomitant]

REACTIONS (12)
  - ABDOMINAL PAIN UPPER [None]
  - CIRCULATORY COLLAPSE [None]
  - CONFUSIONAL STATE [None]
  - DISORIENTATION [None]
  - HEADACHE [None]
  - HYPOTHERMIA [None]
  - MALAISE [None]
  - MEMORY IMPAIRMENT [None]
  - MUSCULOSKELETAL STIFFNESS [None]
  - PAIN [None]
  - SYNCOPE [None]
  - TREMOR [None]
